FAERS Safety Report 8840735 (Version 3)
Quarter: 2013Q3

REPORT INFORMATION
  Report Type: Report from Study
  Country: JP (occurrence: JP)
  Receive Date: 20121015
  Receipt Date: 20130911
  Transmission Date: 20140515
  Serious: Yes (Other)
  Sender: FDA-Public Use
  Company Number: JP-VERTEX PHARMACEUTICAL INC.-AE-2012-010615

PATIENT
  Age: 39 Year
  Sex: Male

DRUGS (10)
  1. VX-950 (TELAPREVIR) [Suspect]
     Indication: CHRONIC HEPATITIS C
     Dosage: 2250 MG, QD
     Route: 048
     Dates: start: 20120329, end: 20120620
  2. RIBAVIRIN [Suspect]
     Indication: CHRONIC HEPATITIS C
     Dosage: 800 MG, QD
     Route: 048
     Dates: start: 20120329, end: 20120418
  3. RIBAVIRIN [Suspect]
     Dosage: 400 MG, QD
     Route: 048
     Dates: start: 20120419, end: 20120613
  4. RIBAVIRIN [Suspect]
     Dosage: 200 MG, QD
     Route: 048
     Dates: start: 20120614, end: 20120704
  5. RIBAVIRIN [Suspect]
     Dosage: 400 MG, QD
     Route: 048
     Dates: start: 20120705, end: 20120718
  6. RIBAVIRIN [Suspect]
     Dosage: 600 MG, QD
     Route: 048
     Dates: start: 20120719, end: 20120912
  7. PEGINTRON [Suspect]
     Indication: CHRONIC HEPATITIS C
     Dosage: 1.5 ?G/KG, WEEK
     Route: 058
     Dates: start: 20120329, end: 20120329
  8. PEGINTRON [Suspect]
     Dosage: 0.75 ?G/KG, WEEK
     Route: 058
     Dates: start: 20120405, end: 20120405
  9. PEGINTRON [Suspect]
     Dosage: 1.5 ?G/KG, WEEK
     Route: 058
     Dates: start: 20120412, end: 20120830
  10. PEGINTRON [Suspect]
     Dosage: 1.3 ?G/KG, WEEK
     Route: 058
     Dates: start: 20120906, end: 20120906

REACTIONS (2)
  - Neutrophil count decreased [Recovered/Resolved]
  - Retinopathy [Not Recovered/Not Resolved]
